FAERS Safety Report 12651198 (Version 1)
Quarter: 2016Q3

REPORT INFORMATION
  Report Type: Spontaneous
  Country: US (occurrence: US)
  Receive Date: 20160815
  Receipt Date: 20160815
  Transmission Date: 20161109
  Serious: No
  Sender: FDA-Public Use
  Company Number: US-ASTRAZENECA-2016SE82675

PATIENT
  Age: 0 Year
  Sex: Female
  Weight: 52.2 kg

DRUGS (6)
  1. PULMICORT TURBUHALER [Suspect]
     Active Substance: BUDESONIDE
     Indication: LUNG DISORDER
     Route: 055
     Dates: start: 2006, end: 201208
  2. PULMICORT TURBUHALER [Suspect]
     Active Substance: BUDESONIDE
     Indication: LUNG DISORDER
     Route: 055
     Dates: start: 1994, end: 2006
  3. PULMOZYME [Concomitant]
     Active Substance: DORNASE ALFA
     Indication: CYSTIC FIBROSIS
     Dosage: DAILY
     Route: 055
     Dates: start: 199412
  4. PULMICORT TURBUHALER [Suspect]
     Active Substance: BUDESONIDE
     Indication: CYSTIC FIBROSIS
     Route: 055
     Dates: start: 1994, end: 2006
  5. PULMICORT TURBUHALER [Suspect]
     Active Substance: BUDESONIDE
     Indication: CYSTIC FIBROSIS
     Route: 055
     Dates: start: 2006, end: 201208
  6. MULTIVITAMIN [Concomitant]
     Active Substance: VITAMINS
     Dosage: DAILY
     Route: 048

REACTIONS (7)
  - Bronchial hyperreactivity [Unknown]
  - Foot fracture [Unknown]
  - Infective pulmonary exacerbation of cystic fibrosis [Unknown]
  - Product use issue [Recovered/Resolved]
  - Bone density decreased [Unknown]
  - Wrist fracture [Unknown]
  - Off label use [Recovered/Resolved]

NARRATIVE: CASE EVENT DATE: 1994
